FAERS Safety Report 11692584 (Version 1)
Quarter: 2015Q4

REPORT INFORMATION
  Report Type: Spontaneous
  Country: US (occurrence: None)
  Receive Date: 20151102
  Receipt Date: 20151102
  Transmission Date: 20160304
  Serious: Yes (Hospitalization)
  Sender: FDA-Public Use
  Company Number: None

PATIENT
  Age: 46 Year
  Sex: Male
  Weight: 111.3 kg

DRUGS (1)
  1. REGADENOSON [Suspect]
     Active Substance: REGADENOSON
     Indication: CARDIAC STRESS TEST
     Dates: start: 20150901, end: 20150901

REACTIONS (5)
  - Chest pain [None]
  - Cerebrovascular accident [None]
  - Lethargy [None]
  - Mental status changes [None]
  - No therapeutic response [None]

NARRATIVE: CASE EVENT DATE: 20150901
